FAERS Safety Report 17105292 (Version 1)
Quarter: 2019Q4

REPORT INFORMATION
  Report Type: Spontaneous
  Country: US (occurrence: US)
  Receive Date: 20191203
  Receipt Date: 20191203
  Transmission Date: 20200122
  Serious: No
  Sender: FDA-Public Use
  Company Number: US-SA-2019SA334191

PATIENT
  Age: 44 Year
  Sex: Female
  Weight: 54.42 kg

DRUGS (10)
  1. SODIUM CHLORIDE 0.9% [Concomitant]
     Active Substance: SODIUM CHLORIDE
     Dosage: AS DIRECTED
     Route: 042
     Dates: start: 20190523
  2. STERILE WATER [Concomitant]
     Active Substance: WATER
     Dosage: 1 EA AS DIRECTED
     Route: 042
     Dates: start: 20190523
  3. CEREZYME [Suspect]
     Active Substance: IMIGLUCERASE
     Indication: GAUCHER^S DISEASE
     Dosage: 2400 UNITS, QOW
     Route: 042
     Dates: start: 20120620
  4. TYLENOL [Concomitant]
     Active Substance: ACETAMINOPHEN
     Dosage: 2 TABS, PRN
     Route: 048
     Dates: start: 20160711
  5. HEPARIN [Concomitant]
     Active Substance: HEPARIN SODIUM
     Dosage: 100 UNITS
     Route: 042
     Dates: start: 20190523
  6. PLAQUENIL [Concomitant]
     Active Substance: HYDROXYCHLOROQUINE SULFATE
     Dosage: 300 MG, QD
     Route: 048
     Dates: start: 20160927
  7. EPINEPHRINE MINIJET [Concomitant]
     Indication: ANAPHYLACTIC REACTION
     Dosage: 0.3 MG, PRN
     Route: 030
     Dates: start: 20190523
  8. CRANBERRY [ASCORBIC ACID;VACCINIUM SPP.] [Concomitant]
     Active Substance: ASCORBIC ACID\CRANBERRY
     Dosage: UNK UNK, QD
     Route: 048
     Dates: start: 20160711
  9. ATROVENT HFA [Concomitant]
     Active Substance: IPRATROPIUM BROMIDE
     Dosage: 2 SPRAYS NASALLY, BID
     Dates: start: 20191030
  10. NORMAL SALINE [Concomitant]
     Active Substance: SODIUM CHLORIDE
     Dosage: 0.9% AS DIRECTED
     Route: 065
     Dates: start: 20190523

REACTIONS (1)
  - Urinary tract infection [Unknown]
